FAERS Safety Report 5830636-2 (Version None)
Quarter: 2008Q3

REPORT INFORMATION
  Report Type: 
  Country: None (occurrence: None)
  Receive Date: 20080801
  Receipt Date: 20070830
  Transmission Date: 20090109
  Serious: No
  Sender: FDA-Public Use
  Company Number: US-BRISTOL-MYERS SQUIBB COMPANY-13894068

PATIENT
  Age: 87 Year
  Sex: Female
  Weight: 68 kg

DRUGS (7)
  1. COUMADIN [Suspect]
     Indication: ATRIAL FIBRILLATION
     Dosage: 2 TABLETS(4 MG) ONCE DAILY ON MONDAY,WEDNESDAY AND FRIDAYS.1 TABLET ON REMAINING DAYS.
     Route: 048
     Dates: start: 19990101
  2. METOPROLOL [Concomitant]
  3. TORSEMIDE [Concomitant]
  4. POTASSIUM CHLORIDE [Concomitant]
  5. LANOXIN [Concomitant]
  6. PROTONIX [Concomitant]
  7. ASPIRIN [Concomitant]
     Route: 048

REACTIONS (2)
  - DRUG INEFFECTIVE [None]
  - INTERNATIONAL NORMALISED RATIO DECREASED [None]
